FAERS Safety Report 15974295 (Version 2)
Quarter: 2019Q3

REPORT INFORMATION
  Report Type: Spontaneous
  Country: BR (occurrence: BR)
  Receive Date: 20190218
  Receipt Date: 20190731
  Transmission Date: 20191004
  Serious: Yes (Hospitalization, Other)
  Sender: FDA-Public Use
  Company Number: BR-SA-2019SA037352

PATIENT
  Age: 38 Year
  Sex: Female
  Weight: 85 kg

DRUGS (8)
  1. FEMIANE [Concomitant]
     Active Substance: ETHINYL ESTRADIOL\GESTODENE
     Indication: CONTRACEPTION
     Dosage: UNK UNK, UNK
     Route: 065
  2. VITAMIN D [COLECALCIFEROL] [Concomitant]
     Active Substance: CHOLECALCIFEROL
     Indication: PREGNANCY
     Dosage: 4000 UIU, QD
     Route: 048
     Dates: start: 201509
  3. ALDOMET [Concomitant]
     Active Substance: METHYLDOPA
     Indication: BLOOD PRESSURE MEASUREMENT
     Dosage: UNK UNK, UNK
     Route: 065
  4. LANTUS [Suspect]
     Active Substance: INSULIN GLARGINE
     Dosage: 38 IU, QD
     Route: 058
  5. HUMALOG [Concomitant]
     Active Substance: INSULIN LISPRO
     Indication: DIABETES MELLITUS
     Dosage: 1 UI FOR EACH 2G CARBOHYDRATE
     Route: 058
     Dates: start: 201509
  6. NATELE [Concomitant]
     Active Substance: VITAMINS
     Indication: PREGNANCY
     Dosage: 1 DF, QD
     Route: 048
     Dates: start: 20181230
  7. LANTUS [Suspect]
     Active Substance: INSULIN GLARGINE
     Indication: TYPE 1 DIABETES MELLITUS
     Dosage: 45 IU, QD
     Route: 058
     Dates: start: 201509
  8. AMLODIPINE [Concomitant]
     Active Substance: AMLODIPINE BESYLATE
     Indication: BLOOD PRESSURE MEASUREMENT
     Dosage: 1 DF, QD
     Route: 065

REACTIONS (11)
  - Blood glucose fluctuation [Unknown]
  - Premature baby [Unknown]
  - Diabetes mellitus inadequate control [Unknown]
  - Foetal growth restriction [Unknown]
  - Glucose tolerance impaired in pregnancy [Unknown]
  - Musculoskeletal stiffness [Unknown]
  - Trigger finger [Not Recovered/Not Resolved]
  - Bone callus excessive [Not Recovered/Not Resolved]
  - Blood pressure abnormal [Unknown]
  - Exposure during pregnancy [Unknown]
  - Glycosylated haemoglobin increased [Unknown]
